FAERS Safety Report 26210297 (Version 1)
Quarter: 2025Q4

REPORT INFORMATION
  Report Type: Spontaneous
  Country: US (occurrence: US)
  Receive Date: 20251229
  Receipt Date: 20251229
  Transmission Date: 20260118
  Serious: Yes (Other)
  Sender: NOVO NORDISK
  Company Number: US-NOVOPROD-1590479

PATIENT
  Sex: Female
  Weight: 108 kg

DRUGS (3)
  1. OZEMPIC [Suspect]
     Active Substance: SEMAGLUTIDE
     Indication: Glucose tolerance impaired
     Dosage: 0.25 MG, QW
     Route: 058
     Dates: start: 202407
  2. OZEMPIC [Suspect]
     Active Substance: SEMAGLUTIDE
     Indication: Overweight
  3. OZEMPIC [Suspect]
     Active Substance: SEMAGLUTIDE
     Indication: Hypertension
     Dosage: 0.5 MG, QW
     Route: 058
     Dates: end: 202503

REACTIONS (2)
  - Neuroendocrine tumour [Unknown]
  - Product use in unapproved indication [Recovered/Resolved]

NARRATIVE: CASE EVENT DATE: 20240701
